FAERS Safety Report 8971653 (Version 1)
Quarter: 2012Q4

REPORT INFORMATION
  Report Type: 
  Country: US (occurrence: US)
  Receive Date: 20121217
  Receipt Date: 20121217
  Transmission Date: 20130627
  Serious: No
  Sender: FDA-Public Use
  Company Number: US-ABBOTT-12P-163-1007873-00

PATIENT

DRUGS (2)
  1. NIMBEX [Suspect]
     Indication: PRODUCT USED FOR UNKNOWN INDICATION
  2. NOVOLOG [Suspect]
     Indication: PRODUCT USED FOR UNKNOWN INDICATION

REACTIONS (3)
  - Medication error [Unknown]
  - Circumstance or information capable of leading to medication error [None]
  - Product outer packaging issue [None]
